FAERS Safety Report 13194104 (Version 5)
Quarter: 2017Q1

REPORT INFORMATION
  Report Type: Report from Study
  Country: None (occurrence: ES)
  Receive Date: 20170207
  Receipt Date: 20170309
  Transmission Date: 20170428
  Serious: Yes (Hospitalization, Other)
  Sender: FDA-Public Use
  Company Number: ES-ABBVIE-17K-144-1861882-00

PATIENT
  Age: 75 Year
  Sex: Female

DRUGS (2)
  1. DUODOPA [Suspect]
     Active Substance: CARBIDOPA\LEVODOPA
     Route: 050
  2. DUODOPA [Suspect]
     Active Substance: CARBIDOPA\LEVODOPA
     Indication: PARKINSON^S DISEASE
     Dosage: MORNING DOSE: 14.30 ML, CONTINUOUS DOSE: 5.20 ML/H, EXTRA DOSE: 3 ML
     Route: 050
     Dates: start: 20161216, end: 20170129

REACTIONS (12)
  - Infection [Unknown]
  - Agitation [Recovering/Resolving]
  - Stoma site haemorrhage [Recovering/Resolving]
  - Pneumoperitoneum [Recovering/Resolving]
  - Hepatic haematoma [Unknown]
  - Blood test abnormal [Unknown]
  - Discomfort [Recovering/Resolving]
  - Confusional state [Recovering/Resolving]
  - Nervousness [Unknown]
  - Anaemia [Unknown]
  - Pyrexia [Recovering/Resolving]
  - Stoma site oedema [Not Recovered/Not Resolved]

NARRATIVE: CASE EVENT DATE: 201701
